FAERS Safety Report 20356662 (Version 1)
Quarter: 2022Q1

REPORT INFORMATION
  Report Type: Other
  Country: CA (occurrence: CA)
  Receive Date: 20220120
  Receipt Date: 20220120
  Transmission Date: 20220423
  Serious: Yes (Other)
  Sender: FDA-Public Use
  Company Number: CA-PFIZER INC-202200063530

PATIENT
  Age: 67 Year
  Sex: Male

DRUGS (9)
  1. AMLODIPINE BESYLATE [Suspect]
     Active Substance: AMLODIPINE BESYLATE
     Indication: Hypertension
     Dosage: UNK
     Route: 065
  2. AMLODIPINE BESYLATE [Suspect]
     Active Substance: AMLODIPINE BESYLATE
     Indication: Hypertension
     Dosage: UNK
  3. LUTETIUM LU-177 [Suspect]
     Active Substance: LUTETIUM LU-177
     Indication: Prostate cancer metastatic
     Dosage: UNK
     Route: 065
  4. LUTETIUM LU-177 [Suspect]
     Active Substance: LUTETIUM LU-177
     Indication: Hormone-refractory prostate cancer
     Dosage: UNK
     Route: 065
  5. LUTETIUM LU-177 [Suspect]
     Active Substance: LUTETIUM LU-177
     Dosage: UNK
     Route: 065
  6. LUTETIUM LU-177 [Suspect]
     Active Substance: LUTETIUM LU-177
     Dosage: UNK
     Route: 065
  7. LUTETIUM LU-177 VIPIVOTIDE TETRAXETAN [Suspect]
     Active Substance: LUTETIUM LU-177 VIPIVOTIDE TETRAXETAN
     Indication: Prostate cancer metastatic
     Dosage: UNK
     Route: 065
  8. LUTETIUM LU-177 VIPIVOTIDE TETRAXETAN [Suspect]
     Active Substance: LUTETIUM LU-177 VIPIVOTIDE TETRAXETAN
     Indication: Hormone-refractory prostate cancer
  9. PERINDOPRIL [Suspect]
     Active Substance: PERINDOPRIL
     Indication: Hypertension
     Dosage: UNK
     Route: 065

REACTIONS (3)
  - Chronic kidney disease [Unknown]
  - Condition aggravated [Unknown]
  - Cytopenia [Unknown]
